FAERS Safety Report 21440198 (Version 2)
Quarter: 2023Q1

REPORT INFORMATION
  Report Type: Spontaneous
  Country: US (occurrence: US)
  Receive Date: 20221011
  Receipt Date: 20230124
  Transmission Date: 20230417
  Serious: Yes (Other)
  Sender: FDA-Public Use
  Company Number: US-AMNEAL PHARMACEUTICALS-2021-AMRX-05428

PATIENT
  Age: 52 Year
  Sex: Male
  Weight: 108 kg

DRUGS (2)
  1. LIORESAL [Suspect]
     Active Substance: BACLOFEN
     Indication: Product used for unknown indication
     Dosage: 470 ?G, \DAY
     Route: 037
     Dates: end: 20210629
  2. LIORESAL [Suspect]
     Active Substance: BACLOFEN
     Dosage: 414.3 MICROGRAM, DAILY
     Route: 037

REACTIONS (2)
  - Therapeutic product effect variable [Recovered/Resolved]
  - Implant site infection [Recovered/Resolved]

NARRATIVE: CASE EVENT DATE: 20210629
